FAERS Safety Report 8664357 (Version 10)
Quarter: 2013Q2

REPORT INFORMATION
  Report Type: Report from Study
  Country: ES (occurrence: ES)
  Receive Date: 20120713
  Receipt Date: 20130410
  Transmission Date: 20140414
  Serious: Yes (Hospitalization)
  Sender: FDA-Public Use
  Company Number: ES-BRISTOL-MYERS SQUIBB COMPANY-16728131

PATIENT
  Age: 59 Year
  Sex: Female

DRUGS (4)
  1. IPILIMUMAB [Suspect]
     Indication: METASTATIC MALIGNANT MELANOMA
     Dosage: COURSES:2?PREV-11JUN12
     Route: 042
     Dates: start: 20120523
  2. ENANTYUM [Concomitant]
     Dosage: 22JUN12-26-JUN12, 29JUN12-UNK
     Dates: start: 20120622
  3. MORFIN [Concomitant]
     Dates: start: 20120626, end: 20120629
  4. METAMIZOLE [Concomitant]
     Dates: start: 20120629

REACTIONS (3)
  - Pain [Recovered/Resolved]
  - Vomiting [Recovered/Resolved]
  - Diarrhoea [Recovered/Resolved]
